FAERS Safety Report 10044056 (Version 2)
Quarter: 2014Q1

REPORT INFORMATION
  Report Type: Spontaneous
  Country: US (occurrence: US)
  Receive Date: 20140328
  Receipt Date: 20140328
  Transmission Date: 20141002
  Serious: No
  Sender: FDA-Public Use
  Company Number: US-MYLANLABS-2013S1023482

PATIENT
  Age: 55 Year
  Sex: Female

DRUGS (8)
  1. EMSAM (SELEGILINE TRANSDERMAL SYSTEM) [Suspect]
     Indication: DEPRESSION
     Route: 062
     Dates: start: 20130924, end: 2013
  2. EMSAM (SELEGILINE TRANSDERMAL SYSTEM) [Suspect]
     Indication: DEPRESSION
     Route: 062
     Dates: start: 2013
  3. CLONAZEPAM [Concomitant]
  4. SIMVASTATIN [Concomitant]
  5. LAMICTAL [Concomitant]
  6. XANAX [Concomitant]
  7. ELESTRIN [Concomitant]
  8. PROVIGIL /01265601/ [Concomitant]

REACTIONS (3)
  - Drug effect increased [Not Recovered/Not Resolved]
  - Fatigue [Not Recovered/Not Resolved]
  - Wrong technique in drug usage process [Not Recovered/Not Resolved]
